FAERS Safety Report 20467420 (Version 1)
Quarter: 2022Q1

REPORT INFORMATION
  Report Type: Spontaneous
  Country: None (occurrence: CN)
  Receive Date: 20220214
  Receipt Date: 20220214
  Transmission Date: 20220423
  Serious: Yes (Death, Other)
  Sender: FDA-Public Use
  Company Number: CN-Jiangsu Hengrui Medicine Co., Ltd.-2125852

PATIENT
  Age: 74 Year
  Sex: Male

DRUGS (5)
  1. CYCLOPHOSPHAMIDE [Suspect]
     Active Substance: CYCLOPHOSPHAMIDE
     Indication: B-cell lymphoma stage IV
  2. RITUXIMAB [Suspect]
     Active Substance: RITUXIMAB
  3. DOXORUBICIN [Suspect]
     Active Substance: DOXORUBICIN
  4. VINCRISTINE [Suspect]
     Active Substance: VINCRISTINE
  5. PREDNISOLONE [Suspect]
     Active Substance: PREDNISOLONE

REACTIONS (4)
  - Multiple organ dysfunction syndrome [Fatal]
  - Disseminated cytomegaloviral infection [Recovering/Resolving]
  - Cytomegalovirus viraemia [Unknown]
  - Encephalitis cytomegalovirus [Not Recovered/Not Resolved]
